FAERS Safety Report 14934947 (Version 1)
Quarter: 2018Q2

REPORT INFORMATION
  Report Type: Spontaneous
  Country: US (occurrence: US)
  Receive Date: 20180506
  Receipt Date: 20180506
  Transmission Date: 20180711
  Serious: Yes (Other)
  Sender: FDA-Public Use
  Company Number: None

PATIENT
  Age: 35 Year
  Sex: Female
  Weight: 79.83 kg

DRUGS (10)
  1. NEXPLANON [Suspect]
     Active Substance: ETONOGESTREL
     Dates: start: 20130705
  2. SUMATRIPTAN. [Concomitant]
     Active Substance: SUMATRIPTAN
  3. IBUPROFEN. [Concomitant]
     Active Substance: IBUPROFEN
  4. VAPOR RUB [Concomitant]
  5. BUTALBITAL [Concomitant]
     Active Substance: BUTALBITAL
  6. MINOCYCLINE [Concomitant]
     Active Substance: MINOCYCLINE\MINOCYCLINE HYDROCHLORIDE
  7. MELOXICAM. [Concomitant]
     Active Substance: MELOXICAM
  8. FLUOCINONIDE. [Concomitant]
     Active Substance: FLUOCINONIDE
  9. ZOLPIDEM [Concomitant]
     Active Substance: ZOLPIDEM\ZOLPIDEM TARTRATE
  10. HALL COUGH DROPS [Concomitant]

REACTIONS (6)
  - Migraine [None]
  - Pain in extremity [None]
  - Oropharyngeal pain [None]
  - Feeling abnormal [None]
  - Psychiatric symptom [None]
  - Weight increased [None]

NARRATIVE: CASE EVENT DATE: 20130705
